FAERS Safety Report 7619788-1 (Version None)
Quarter: 2011Q3

REPORT INFORMATION
  Report Type: 
  Country: None (occurrence: None)
  Receive Date: 20110719
  Receipt Date: 20110526
  Transmission Date: 20111222
  Serious: Yes (Hospitalization, Other)
  Sender: FDA-Public Use
  Company Number: US-BAYER-201035819NA

PATIENT
  Age: 50 Year
  Sex: Female
  Weight: 63.5 kg

DRUGS (18)
  1. YASMIN [Suspect]
     Indication: PREMENSTRUAL SYNDROME
  2. ULTRACET [Concomitant]
     Route: 048
  3. DROSPIRENONE AND ETHINYL ESTRADIOL [Suspect]
     Indication: CONTRACEPTION
     Dosage: UNK UNK, UNK
     Route: 048
     Dates: start: 20050101, end: 20100428
  4. LEVAQUIN [Concomitant]
     Dosage: UNK
     Route: 048
     Dates: start: 20060516
  5. PEPCID [Concomitant]
     Dosage: 20 MG, UNK
     Route: 048
  6. ASPIRIN [Concomitant]
     Dosage: 81 MG, UNK
     Route: 048
  7. CLARITIN [Concomitant]
     Dosage: 10 MG, UNK
     Route: 048
  8. ACIPHEX [Concomitant]
     Indication: GASTROOESOPHAGEAL REFLUX DISEASE
     Dosage: 10 MG, UNK
     Route: 048
     Dates: start: 20060101
  9. KLONOPIN [Concomitant]
     Indication: DEPRESSION
     Dosage: 0.5 MG, UNK
     Route: 048
     Dates: start: 20070901
  10. TRAMADOL HCL [Concomitant]
     Indication: PAIN MANAGEMENT
     Dosage: 50 MG, UNK
     Route: 048
     Dates: start: 20060101
  11. DROSPIRENONE AND ETHINYL ESTRADIOL [Suspect]
     Indication: PREMENSTRUAL SYNDROME
  12. FLONASE [Concomitant]
     Indication: MULTIPLE ALLERGIES
     Dosage: 50 ?G, UNK
     Route: 048
     Dates: start: 20060101
  13. COZAAR [Concomitant]
     Indication: HYPERTENSION
     Dosage: 50 MG, UNK
     Route: 048
     Dates: start: 20090101
  14. HEPARIN [Concomitant]
     Route: 058
  15. MULTI-VITAMIN [Concomitant]
     Dosage: UNK UNK, QD
     Dates: start: 19800101
  16. YASMIN [Suspect]
     Indication: CONTRACEPTION
     Route: 048
     Dates: start: 20050101, end: 20100428
  17. ZYRTEC [Concomitant]
     Indication: MULTIPLE ALLERGIES
     Dosage: 10 MG, UNK
     Route: 048
     Dates: start: 20060101
  18. PROZAC [Concomitant]
     Indication: ANXIETY
     Dosage: 20 MG, UNK
     Route: 048
     Dates: start: 20070901

REACTIONS (9)
  - CEREBROVASCULAR ACCIDENT [None]
  - MOTOR DYSFUNCTION [None]
  - AMNESIA [None]
  - MUSCULAR WEAKNESS [None]
  - DEPRESSION [None]
  - GALLBLADDER DISORDER [None]
  - DISTURBANCE IN ATTENTION [None]
  - SPEECH DISORDER [None]
  - CHOLELITHIASIS [None]
